FAERS Safety Report 8770333 (Version 2)
Quarter: 2012Q4

REPORT INFORMATION
  Report Type: 
  Country: KR (occurrence: KR)
  Receive Date: 20120906
  Receipt Date: 20120914
  Transmission Date: 20130627
  Serious: Yes (Hospitalization, Other)
  Sender: FDA-Public Use
  Company Number: KR-BAXTER-2012BAX015419

PATIENT
  Age: 59 Year
  Sex: Female
  Weight: 57 kg

DRUGS (10)
  1. DIANEAL [Suspect]
     Indication: CONTINUOUS AMBULATORY PERITONEAL DIALYSIS
     Route: 033
     Dates: start: 20110304, end: 20120818
  2. DIANEAL [Suspect]
     Indication: END STAGE RENAL DISEASE (ESRD)
     Route: 033
     Dates: start: 20120827
  3. DIANEAL [Suspect]
     Route: 033
     Dates: start: 20120830, end: 20120831
  4. DIANEAL [Suspect]
     Indication: CONTINUOUS AMBULATORY PERITONEAL DIALYSIS
     Route: 033
     Dates: start: 20110304, end: 20120818
  5. DIANEAL [Suspect]
     Indication: END STAGE RENAL DISEASE (ESRD)
     Route: 033
     Dates: start: 20120830, end: 20120831
  6. EXTRANEAL [Suspect]
     Indication: CONTINUOUS AMBULATORY PERITONEAL DIALYSIS
     Route: 033
     Dates: start: 20110304, end: 20110818
  7. EXTRANEAL [Suspect]
     Indication: END STAGE RENAL DISEASE (ESRD)
     Route: 033
     Dates: start: 20120830, end: 20120831
  8. RENAGEL [Concomitant]
     Indication: END STAGE RENAL DISEASE (ESRD)
     Route: 048
  9. CICIBON [Concomitant]
     Indication: END STAGE RENAL DISEASE (ESRD)
     Route: 048
  10. LOSARTAN [Concomitant]
     Indication: END STAGE RENAL DISEASE (ESRD)
     Route: 048

REACTIONS (3)
  - Pneumoperitoneum [Recovering/Resolving]
  - Musculoskeletal pain [Recovered/Resolved]
  - Abdominal pain [Recovered/Resolved]
